FAERS Safety Report 5469877-5 (Version None)
Quarter: 2007Q3

REPORT INFORMATION
  Report Type: 
  Country: None (occurrence: None)
  Receive Date: 20070927
  Receipt Date: 20070921
  Transmission Date: 20080115
  Serious: Yes (Hospitalization)
  Sender: FDA-Public Use
  Company Number: FR-SHR-FR-2007-019895

PATIENT
  Age: 66 Year
  Sex: Female

DRUGS (2)
  1. CLIMARA [Suspect]
     Dosage: UNK A?G/DAY, CONT
     Route: 062
     Dates: start: 20060515, end: 20061228
  2. ESTREVA [Concomitant]
     Dates: start: 19980101, end: 20060101

REACTIONS (1)
  - PANCREATITIS RELAPSING [None]
